FAERS Safety Report 15560777 (Version 6)
Quarter: 2019Q2

REPORT INFORMATION
  Report Type: Spontaneous
  Country: US (occurrence: US)
  Receive Date: 20181029
  Receipt Date: 20190621
  Transmission Date: 20190711
  Serious: No
  Sender: FDA-Public Use
  Company Number: US-PFIZER INC-2018436257

PATIENT
  Age: 66 Year
  Sex: Female

DRUGS (1)
  1. LYRICA [Suspect]
     Active Substance: PREGABALIN
     Dosage: 100 MG, 4X/DAY
     Route: 048

REACTIONS (5)
  - Pain [Unknown]
  - Fall [Unknown]
  - Off label use [Unknown]
  - Laryngitis [Unknown]
  - Contusion [Unknown]
